FAERS Safety Report 5150600-9 (Version None)
Quarter: 2006Q4

REPORT INFORMATION
  Report Type: 
  Country: None (occurrence: None)
  Receive Date: 20061114
  Receipt Date: 20061109
  Transmission Date: 20070319
  Serious: Yes (Hospitalization, Disabling)
  Sender: FDA-Public Use
  Company Number: AU-BRISTOL-MYERS SQUIBB COMPANY-13572086

PATIENT
  Age: 50 Year

DRUGS (10)
  1. AMIKACIN SULFATE [Suspect]
     Indication: BACTERIAL INFECTION
     Route: 042
     Dates: end: 20050617
  2. AZTREONAM [Suspect]
     Indication: BACTERIAL INFECTION
     Route: 042
  3. VANCOMYCIN HCL [Suspect]
     Route: 042
     Dates: end: 20050617
  4. CLEXANE [Concomitant]
  5. METOPROLOL TARTRATE [Concomitant]
  6. VITAMIN CAP [Concomitant]
  7. MS CONTIN [Concomitant]
  8. FERRO-GRADUMET [Concomitant]
  9. OMEPRAZOLE [Concomitant]
  10. AMITRIPTYLINE HCL [Concomitant]

REACTIONS (2)
  - DEAFNESS [None]
  - TINNITUS [None]
